FAERS Safety Report 9461415 (Version 1)
Quarter: 2013Q3

REPORT INFORMATION
  Report Type: Spontaneous
  Country: FR (occurrence: FR)
  Receive Date: 20130816
  Receipt Date: 20130816
  Transmission Date: 20140515
  Serious: Yes (Hospitalization, Disabling)
  Sender: FDA-Public Use
  Company Number: FR-ABBOTT-13X-056-1132509-00

PATIENT
  Age: 69 Year
  Sex: Male

DRUGS (5)
  1. TARKA [Suspect]
     Indication: CARDIAC DISORDER
     Dosage: FORM STRENGTH: 180 MG/2 MG; DAILY DOSE 180 MG/2 MG
     Route: 048
     Dates: end: 20121227
  2. VERAPAMIL [Suspect]
     Indication: CARDIAC DISORDER
     Route: 048
  3. PLAVIX [Concomitant]
     Indication: PRODUCT USED FOR UNKNOWN INDICATION
  4. GLUCOPHAGE [Concomitant]
     Indication: PRODUCT USED FOR UNKNOWN INDICATION
  5. DAFALGAN [Concomitant]
     Indication: PRODUCT USED FOR UNKNOWN INDICATION

REACTIONS (3)
  - Extrapyramidal disorder [Not Recovered/Not Resolved]
  - Fall [Unknown]
  - Parkinsonism [Unknown]
